FAERS Safety Report 18462394 (Version 4)
Quarter: 2021Q1

REPORT INFORMATION
  Report Type: Report from Study
  Country: US (occurrence: US)
  Receive Date: 20201104
  Receipt Date: 20210204
  Transmission Date: 20210419
  Serious: Yes (Hospitalization, Other)
  Sender: FDA-Public Use
  Company Number: US-RETROPHIN, INC.-2020RTN00134

PATIENT
  Age: 3 Year
  Sex: Male
  Weight: 10.3 kg

DRUGS (8)
  1. FLONASE [Concomitant]
     Active Substance: FLUTICASONE PROPIONATE
     Dosage: UNK
     Dates: end: 202010
  2. IRON [Concomitant]
     Active Substance: IRON
  3. CHOLIC ACID [Suspect]
     Active Substance: CHOLIC ACID
     Indication: CEREBROHEPATORENAL SYNDROME
     Dosage: 50 MG, 2X/DAY
     Route: 048
     Dates: start: 20200827, end: 2020
  4. SINGULAIR [Concomitant]
     Active Substance: MONTELUKAST SODIUM
     Dosage: UNK
     Dates: end: 202010
  5. MULTIVITAMIN [Concomitant]
     Active Substance: VITAMINS
     Dosage: UNK
     Dates: end: 202010
  6. KEPPRA [Concomitant]
     Active Substance: LEVETIRACETAM
  7. MELATONIN [Concomitant]
     Active Substance: MELATONIN
  8. CHOLIC ACID [Suspect]
     Active Substance: CHOLIC ACID
     Dosage: 150 MG, AS DIRECTED (DAILY OR DIVIDED TWICE DAILY)
     Route: 048
     Dates: start: 2020

REACTIONS (4)
  - Sleep apnoea syndrome [Unknown]
  - Nasal congestion [Unknown]
  - Atonic seizures [Not Recovered/Not Resolved]
  - Vitamin E decreased [Unknown]

NARRATIVE: CASE EVENT DATE: 2020
